FAERS Safety Report 24814064 (Version 1)
Quarter: 2025Q1

REPORT INFORMATION
  Report Type: Spontaneous
  Country: PT (occurrence: PT)
  Receive Date: 20250107
  Receipt Date: 20250107
  Transmission Date: 20250409
  Serious: Yes (Other)
  Sender: AUROBINDO
  Company Number: PT-AUROBINDO-AUR-APL-2024-064279

PATIENT
  Age: 5 Decade
  Sex: Male

DRUGS (3)
  1. LIDOCAINE [Suspect]
     Active Substance: LIDOCAINE
     Indication: Ventricular tachycardia
     Dosage: 80 MILLIGRAM, EVERY HOUR
     Route: 042
  2. MIDAZOLAM HYDROCHLORIDE [Suspect]
     Active Substance: MIDAZOLAM HYDROCHLORIDE
     Indication: Ventricular tachycardia
     Dosage: 5 MILLIGRAM, EVERY HOUR
     Route: 042
  3. FENTANYL [Suspect]
     Active Substance: FENTANYL
     Indication: Ventricular tachycardia
     Dosage: 0.1 MILLIGRAM, EVERY HOUR
     Route: 042

REACTIONS (1)
  - Drug ineffective [Unknown]
